FAERS Safety Report 19643821 (Version 1)
Quarter: 2021Q3

REPORT INFORMATION
  Report Type: Spontaneous
  Country: SK (occurrence: SK)
  Receive Date: 20210730
  Receipt Date: 20210730
  Transmission Date: 20211014
  Serious: Yes (Other)
  Sender: FDA-Public Use
  Company Number: SK-REGENERON PHARMACEUTICALS, INC.-2021-72858

PATIENT

DRUGS (2)
  1. EYLEA [Suspect]
     Active Substance: AFLIBERCEPT
     Indication: NEOVASCULAR AGE-RELATED MACULAR DEGENERATION
     Dosage: OD EYE
  2. EYLEA [Suspect]
     Active Substance: AFLIBERCEPT
     Dosage: OD EYE
     Dates: start: 20210621, end: 20210621

REACTIONS (3)
  - Vitritis infective [Unknown]
  - Endophthalmitis [Unknown]
  - Hypopyon [Unknown]
